FAERS Safety Report 24001762 (Version 1)
Quarter: 2024Q2

REPORT INFORMATION
  Report Type: Report from Study
  Country: HR (occurrence: HR)
  Receive Date: 20240622
  Receipt Date: 20240622
  Transmission Date: 20240716
  Serious: Yes (Death, Hospitalization)
  Sender: FDA-Public Use
  Company Number: HR-ABBVIE-5802583

PATIENT
  Age: 67 Year
  Sex: Male

DRUGS (3)
  1. CARBIDOPA\LEVODOPA [Suspect]
     Active Substance: CARBIDOPA\LEVODOPA
     Indication: Parkinson^s disease
     Route: 050
     Dates: start: 20200831, end: 20240615
  2. CARBIDOPA\LEVODOPA [Suspect]
     Active Substance: CARBIDOPA\LEVODOPA
  3. OCTENIDINE\PHENOXYETHANOL [Concomitant]
     Active Substance: OCTENIDINE\PHENOXYETHANOL
     Indication: Product used for unknown indication
     Dosage: FREQUENCY TEXT: 2 TO 3 TIMES DAILY
     Route: 061
     Dates: start: 202406

REACTIONS (8)
  - Pneumonia [Fatal]
  - Stoma site infection [Unknown]
  - Stoma site erythema [Unknown]
  - Stoma site discharge [Unknown]
  - Speech disorder [Unknown]
  - Dyspnoea [Fatal]
  - Altered state of consciousness [Fatal]
  - Pyrexia [Fatal]

NARRATIVE: CASE EVENT DATE: 20240601
